FAERS Safety Report 13178246 (Version 1)
Quarter: 2017Q1

REPORT INFORMATION
  Report Type: Spontaneous
  Country: US (occurrence: US)
  Receive Date: 20170202
  Receipt Date: 20170202
  Transmission Date: 20170428
  Serious: No
  Sender: FDA-Public Use
  Company Number: ALCN2017US001085

PATIENT
  Sex: Female

DRUGS (1)
  1. GENTEAL MILD TO MODERATE [Suspect]
     Active Substance: HYPROMELLOSE 2910 (4000 MPA.S)
     Indication: PRODUCT USED FOR UNKNOWN INDICATION
     Dosage: 2 GTT, QD
     Route: 047
     Dates: start: 201701, end: 20170131

REACTIONS (1)
  - Eye pruritus [Recovering/Resolving]

NARRATIVE: CASE EVENT DATE: 201701
